FAERS Safety Report 8596597-0 (Version None)
Quarter: 2012Q3

REPORT INFORMATION
  Report Type: 
  Country: None (occurrence: None)
  Receive Date: 20120815
  Receipt Date: 20120807
  Transmission Date: 20120928
  Serious: Yes (Other)
  Sender: FDA-Public Use
  Company Number: US-BRISTOL-MYERS SQUIBB COMPANY-16818825

PATIENT
  Age: 68 Year
  Sex: Female
  Weight: 83 kg

DRUGS (10)
  1. SYNTHROID [Concomitant]
     Route: 048
  2. PERCOCET [Concomitant]
     Dosage: 1 DF: OXYCODONE-ACETAMINOPHEN 5-325 MG TABLET, EVERY 4 HR
     Route: 048
     Dates: start: 20120330, end: 20120706
  3. PRED FORTE [Concomitant]
  4. COLACE [Concomitant]
     Dosage: 1 DF: 100 UNIT NOS. 1 CAP
     Dates: start: 20120330, end: 20120706
  5. IPILIMUMAB [Suspect]
     Indication: MALIGNANT MELANOMA
     Dosage: LAST ADMINISTERED ON 13-JUN-2012,10MG/KG OVER 90 MIN,05JUL12
     Route: 042
     Dates: start: 20120523
  6. LIPITOR [Concomitant]
     Route: 048
  7. TYLENOL [Concomitant]
     Dosage: 1 DF  = 325 UNIT NOS,2 TABS EVERY FOUR HOUR
     Route: 048
     Dates: start: 20120330
  8. LISINOPRIL [Concomitant]
     Route: 048
  9. ATIVAN [Concomitant]
     Dates: start: 20120509, end: 20120807
  10. PREDNISOLONE SODIUM SUCCINATE INJ [Concomitant]
     Dosage: 1 % OPHTHALMIC SOLUTION, BOTH EYES
     Dates: start: 20120705

REACTIONS (2)
  - UVEITIS [None]
  - HEARING IMPAIRED [None]
